FAERS Safety Report 6152789-1 (Version None)
Quarter: 2009Q2

REPORT INFORMATION
  Report Type: 
  Country: None (occurrence: None)
  Receive Date: 20090409
  Receipt Date: 20090403
  Transmission Date: 20091009
  Serious: Yes (Hospitalization)
  Sender: FDA-Public Use
  Company Number: US025516

PATIENT
  Age: 62 Year
  Sex: Male
  Weight: 73 kg

DRUGS (3)
  1. TREANDA [Suspect]
     Indication: NON-HODGKIN'S LYMPHOMA
     Dosage: D1 AND D2 Q35 DAYS (90 MG/M2), INTRAVENOUS
     Route: 042
     Dates: start: 20090224, end: 20090225
  2. VELCADE [Suspect]
     Indication: NON-HODGKIN'S LYMPHOMA
     Dosage: D1, D8, D15, D21 Q35 DAYS (1.6 MG/M2), INTRAVENOUS
     Route: 042
     Dates: start: 20090224, end: 20090303
  3. RITUXIMAB (RITUXIMAB) [Concomitant]

REACTIONS (34)
  - ABDOMINAL DISTENSION [None]
  - ALPHA HAEMOLYTIC STREPTOCOCCAL INFECTION [None]
  - ANAEMIA [None]
  - ATELECTASIS [None]
  - BACTERIAL SEPSIS [None]
  - BLOOD CULTURE POSITIVE [None]
  - BLOOD LACTATE DEHYDROGENASE INCREASED [None]
  - BREATH SOUNDS ABNORMAL [None]
  - CATHETER RELATED INFECTION [None]
  - CLOSTRIDIAL INFECTION [None]
  - COLLAPSE OF LUNG [None]
  - CULTURE STOOL POSITIVE [None]
  - DEHYDRATION [None]
  - DYSPNOEA [None]
  - ELECTROCARDIOGRAM PR PROLONGATION [None]
  - ELECTROCARDIOGRAM QRS COMPLEX ABNORMAL [None]
  - ELECTROCARDIOGRAM QRS COMPLEX PROLONGED [None]
  - FLUID INTAKE REDUCED [None]
  - GENERALISED OEDEMA [None]
  - HYDRONEPHROSIS [None]
  - LEUKOCYTOSIS [None]
  - LUNG INFILTRATION [None]
  - LYMPHOCYTE COUNT DECREASED [None]
  - LYMPHOMA [None]
  - MALIGNANT NEOPLASM PROGRESSION [None]
  - NEUTROPHIL COUNT INCREASED [None]
  - ORTHOSTATIC HYPOTENSION [None]
  - OXYGEN SATURATION DECREASED [None]
  - PERICARDIAL EFFUSION [None]
  - PLEURAL EFFUSION [None]
  - RESPIRATORY RATE INCREASED [None]
  - SINUS TACHYCARDIA [None]
  - STAPHYLOCOCCAL INFECTION [None]
  - URINE OUTPUT DECREASED [None]
